FAERS Safety Report 8586733-4 (Version None)
Quarter: 2012Q3

REPORT INFORMATION
  Report Type: 
  Country: None (occurrence: None)
  Receive Date: 20120810
  Receipt Date: 20120803
  Transmission Date: 20120928
  Serious: Yes (Other)
  Sender: FDA-Public Use
  Company Number: US-ABBOTT-12P-163-0901121-00

PATIENT
  Sex: Male

DRUGS (3)
  1. ORAL HYPOGLYCEMIC [Concomitant]
     Indication: PRODUCT USED FOR UNKNOWN INDICATION
  2. ORAL HYPERTENSIVE [Concomitant]
     Indication: PRODUCT USED FOR UNKNOWN INDICATION
  3. HUMIRA [Suspect]
     Indication: PSORIASIS
     Route: 058
     Dates: start: 20090901, end: 20120101

REACTIONS (7)
  - LUNG CANCER METASTATIC [None]
  - COUGH [None]
  - LUNG NEOPLASM [None]
  - CENTRAL NERVOUS SYSTEM LESION [None]
  - HEPATIC LESION [None]
  - PAIN IN EXTREMITY [None]
  - UPPER RESPIRATORY TRACT INFECTION [None]
